FAERS Safety Report 15574340 (Version 1)
Quarter: 2018Q4

REPORT INFORMATION
  Report Type: Spontaneous
  Country: US (occurrence: US)
  Receive Date: 20181026
  Receipt Date: 20181026
  Transmission Date: 20190205
  Serious: No
  Sender: FDA-Public Use
  Company Number: None

PATIENT
  Age: 69 Year
  Sex: Female
  Weight: 60.33 kg

DRUGS (1)
  1. ENBREL [Suspect]
     Active Substance: ETANERCEPT
     Indication: RHEUMATOID ARTHRITIS
     Dosage: AS DIRECTED
     Route: 058
     Dates: start: 201606

REACTIONS (6)
  - Rhinorrhoea [None]
  - Product dose omission [None]
  - Oropharyngeal pain [None]
  - Respiratory tract congestion [None]
  - Nasopharyngitis [None]
  - Pyrexia [None]
